FAERS Safety Report 5329001-6 (Version None)
Quarter: 2007Q2

REPORT INFORMATION
  Report Type: 
  Country: None (occurrence: None)
  Receive Date: 20070515
  Receipt Date: 20070508
  Transmission Date: 20071010
  Serious: Yes (Death, Other)
  Sender: FDA-Public Use
  Company Number: 163-21880-07050481

PATIENT

DRUGS (1)
  1. REVLIMID [Suspect]
     Indication: CHRONIC LYMPHOCYTIC LEUKAEMIA
     Dosage: 10 MG DAILY X28 DAYS WITH TITRATION UPWARD BY 5 MG Q28 DAYS TO MAX 25 MG/D, ORAL
     Route: 048

REACTIONS (13)
  - BETA 2 MICROGLOBULIN INCREASED [None]
  - BONE MARROW FAILURE [None]
  - DIARRHOEA [None]
  - FATIGUE [None]
  - FEBRILE NEUTROPENIA [None]
  - INFECTION [None]
  - MUCORMYCOSIS [None]
  - NAUSEA [None]
  - NEOPLASM PROGRESSION [None]
  - NEUTROPENIA [None]
  - PNEUMONIA [None]
  - PRURITUS [None]
  - THROMBOCYTOPENIA [None]
